FAERS Safety Report 23139756 (Version 1)
Quarter: 2023Q4

REPORT INFORMATION
  Report Type: Spontaneous
  Country: DE (occurrence: DE)
  Receive Date: 20231102
  Receipt Date: 20231102
  Transmission Date: 20240110
  Serious: Yes (Other)
  Sender: FDA-Public Use
  Company Number: DE-MAYNE PHARMA-2023MYN000635

PATIENT

DRUGS (1)
  1. TOLSURA [Suspect]
     Active Substance: ITRACONAZOLE
     Indication: Fungal skin infection
     Dosage: 50 MILLIGRAM EVERY 2 DAYS
     Route: 048
     Dates: start: 20211208, end: 20211215

REACTIONS (2)
  - Gestational diabetes [Unknown]
  - Exposure during pregnancy [Unknown]
